FAERS Safety Report 12426649 (Version 7)
Quarter: 2016Q3

REPORT INFORMATION
  Report Type: Spontaneous
  Country: TR (occurrence: TR)
  Receive Date: 20160601
  Receipt Date: 20160916
  Transmission Date: 20161109
  Serious: Yes (Other)
  Sender: FDA-Public Use
  Company Number: PHHY2016TR075805

PATIENT
  Age: 31 Year
  Sex: Female
  Weight: 124 kg

DRUGS (1)
  1. FINGYA [Suspect]
     Active Substance: FINGOLIMOD
     Indication: RELAPSING-REMITTING MULTIPLE SCLEROSIS
     Dosage: 1 DF, QD
     Route: 048
     Dates: start: 20140101, end: 20160523

REACTIONS (7)
  - Acne [Unknown]
  - Hypersensitivity vasculitis [Recovered/Resolved]
  - Drug eruption [Unknown]
  - Behcet^s syndrome [Unknown]
  - Rash [Recovered/Resolved]
  - Acanthosis [Unknown]
  - Alopecia [Recovered/Resolved]

NARRATIVE: CASE EVENT DATE: 201604
